FAERS Safety Report 12547765 (Version 2)
Quarter: 2016Q3

REPORT INFORMATION
  Report Type: Report from Study
  Country: FR (occurrence: FR)
  Receive Date: 20160712
  Receipt Date: 20160715
  Transmission Date: 20161109
  Serious: Yes (Other)
  Sender: FDA-Public Use
  Company Number: FR-ROCHE-1377175

PATIENT
  Sex: Male

DRUGS (4)
  1. RANIBIZUMAB [Suspect]
     Active Substance: RANIBIZUMAB
     Dosage: LEFT EYE
     Route: 050
     Dates: start: 20140528
  2. RANIBIZUMAB [Suspect]
     Active Substance: RANIBIZUMAB
     Dosage: LEFT EYE
     Route: 050
     Dates: start: 20140701
  3. RANIBIZUMAB [Suspect]
     Active Substance: RANIBIZUMAB
     Indication: RETINAL VEIN OCCLUSION
     Dosage: LEFT EYE
     Route: 050
     Dates: start: 20140430
  4. RANIBIZUMAB [Suspect]
     Active Substance: RANIBIZUMAB
     Indication: VISUAL IMPAIRMENT
     Dosage: LEFT EYE
     Route: 050
     Dates: start: 20140326

REACTIONS (3)
  - Stress [Unknown]
  - Ocular discomfort [Not Recovered/Not Resolved]
  - Presyncope [Recovered/Resolved]

NARRATIVE: CASE EVENT DATE: 20140326
